FAERS Safety Report 7466756-9 (Version None)
Quarter: 2011Q2

REPORT INFORMATION
  Report Type: 
  Country: None (occurrence: None)
  Receive Date: 20110509
  Receipt Date: 20100825
  Transmission Date: 20111010
  Serious: No
  Sender: FDA-Public Use
  Company Number: US-ALEXION-A201001076

PATIENT
  Sex: Male

DRUGS (4)
  1. VITAMIN B12                        /00056201/ [Concomitant]
     Dosage: UNK
     Route: 048
  2. SOLIRIS [Suspect]
     Indication: PAROXYSMAL NOCTURNAL HAEMOGLOBINURIA
     Dosage: UNK
     Route: 042
  3. FOLIC ACID [Concomitant]
     Dosage: UNK
     Route: 048
  4. MULTI-VITAMINS [Concomitant]
     Route: 048

REACTIONS (3)
  - LABORATORY TEST ABNORMAL [None]
  - VIRAL INFECTION [None]
  - MALAISE [None]
